FAERS Safety Report 4785023-5 (Version None)
Quarter: 2005Q3

REPORT INFORMATION
  Report Type: 
  Country: None (occurrence: None)
  Receive Date: 20050930
  Receipt Date: 20050905
  Transmission Date: 20060218
  Serious: Yes (Other)
  Sender: FDA-Public Use
  Company Number: GB-ABBOTT-05P-167-0310379-00

PATIENT
  Sex: Female

DRUGS (8)
  1. DEPAKOTE [Suspect]
     Indication: BIPOLAR DISORDER
     Dates: start: 20050503
  2. DEPAKOTE [Suspect]
     Dates: end: 20050502
  3. HALOPERIDOL [Suspect]
     Indication: DELUSION
     Route: 048
     Dates: start: 20050503, end: 20050512
  4. HALOPERIDOL [Suspect]
     Dates: start: 20050513, end: 20050517
  5. HALOPERIDOL [Suspect]
  6. HALOPERIDOL [Suspect]
     Dates: start: 20050513, end: 20050517
  7. QUETIAPINE FUMARATE [Suspect]
     Indication: BIPOLAR DISORDER
     Dates: start: 20050503, end: 20050509
  8. QUETIAPINE FUMARATE [Suspect]
     Dates: start: 20050510, end: 20050517

REACTIONS (3)
  - HYPERHIDROSIS [None]
  - HYPOGLYCAEMIA [None]
  - MALAISE [None]
